FAERS Safety Report 10162494 (Version 1)
Quarter: 2014Q2

REPORT INFORMATION
  Report Type: Spontaneous
  Country: US (occurrence: US)
  Receive Date: 20140509
  Receipt Date: 20140509
  Transmission Date: 20141212
  Serious: Yes (Other)
  Sender: FDA-Public Use
  Company Number: US-MYLANLABS-2014S1010059

PATIENT
  Age: 51 Year
  Sex: Male
  Weight: 81.65 kg

DRUGS (1)
  1. EXTENDED PHENYTOIN SODIUM CAPSULES, USP [Suspect]
     Indication: CONVULSION
     Route: 048
     Dates: start: 2010, end: 20140427

REACTIONS (4)
  - Drug ineffective [Recovered/Resolved]
  - Generalised tonic-clonic seizure [Recovered/Resolved]
  - Convulsion [Recovered/Resolved]
  - Anticonvulsant drug level below therapeutic [Recovered/Resolved]
